FAERS Safety Report 6641079-6 (Version None)
Quarter: 2010Q1

REPORT INFORMATION
  Report Type: 
  Country: None (occurrence: None)
  Receive Date: 20100318
  Receipt Date: 20091020
  Transmission Date: 20100710
  Serious: No
  Sender: FDA-Public Use
  Company Number: US-ASTRAZENECA-2009SE21295

PATIENT
  Sex: Female

DRUGS (2)
  1. ZESTRIL [Suspect]
     Indication: HYPERTENSION
     Route: 048
     Dates: start: 20090301
  2. ZESTRIL [Suspect]
     Route: 048
     Dates: start: 20090301

REACTIONS (1)
  - BLOOD PRESSURE INADEQUATELY CONTROLLED [None]
